FAERS Safety Report 4755786-3 (Version None)
Quarter: 2005Q3

REPORT INFORMATION
  Report Type: 
  Country: None (occurrence: None)
  Receive Date: 20050830
  Receipt Date: 20050728
  Transmission Date: 20060218
  Serious: Yes (Hospitalization)
  Sender: FDA-Public Use
  Company Number: US-BRISTOL-MYERS SQUIBB COMPANY-13054663

PATIENT
  Age: 51 Year
  Sex: Male

DRUGS (7)
  1. ABILIFY [Suspect]
  2. LISINOPRIL [Concomitant]
  3. TOPROL-XL [Concomitant]
  4. INSULIN [Concomitant]
  5. NEXIUM [Concomitant]
  6. KLONOPIN [Concomitant]
  7. SEROQUEL [Concomitant]

REACTIONS (1)
  - ANAEMIA [None]
